FAERS Safety Report 9231276 (Version 2)
Quarter: 2013Q2

REPORT INFORMATION
  Report Type: Spontaneous
  Country: US (occurrence: US)
  Receive Date: 20130415
  Receipt Date: 20130430
  Transmission Date: 20140414
  Serious: Yes (Other)
  Sender: FDA-Public Use
  Company Number: US-PFIZER INC-2013117621

PATIENT
  Age: 73 Year
  Sex: Female
  Weight: 49.89 kg

DRUGS (4)
  1. LYRICA [Suspect]
     Indication: HEADACHE
     Dosage: 50 MG IN THE MORNING AND 75 MG AT NIGHT
     Dates: start: 201004
  2. LYRICA [Suspect]
     Indication: SPONDYLITIS
     Dosage: 75 MG, 2X/DAY (IN THE MORNING AND AT NIGHT)
     Dates: start: 201008
  3. BENADRYL [Suspect]
     Indication: NAUSEA
     Dosage: UNK
  4. SYNTHROID [Concomitant]
     Indication: THYROID DISORDER
     Dosage: 100 UG, 1X/DAY

REACTIONS (6)
  - Off label use [Unknown]
  - Activities of daily living impaired [Recovered/Resolved]
  - Malaise [Recovered/Resolved]
  - Drug ineffective [Unknown]
  - Nausea [Unknown]
  - Feeling abnormal [Unknown]
